FAERS Safety Report 6097374-5 (Version None)
Quarter: 2009Q1

REPORT INFORMATION
  Report Type: 
  Country: None (occurrence: None)
  Receive Date: 20090227
  Receipt Date: 20080320
  Transmission Date: 20090719
  Serious: No
  Sender: FDA-Public Use
  Company Number: A0706668A

PATIENT
  Age: 25 Year
  Sex: Male

DRUGS (2)
  1. IMITREX [Suspect]
     Indication: MIGRAINE
     Dosage: 4MG UNKNOWN
     Route: 058
     Dates: start: 20080101
  2. NAPROXEN [Concomitant]
     Indication: PAIN
     Dosage: 500MG TWICE PER DAY
     Route: 048

REACTIONS (2)
  - INJECTION SITE PAIN [None]
  - PRODUCT QUALITY ISSUE [None]
